FAERS Safety Report 8744227 (Version 2)
Quarter: 2013Q4

REPORT INFORMATION
  Report Type: Spontaneous
  Country: US (occurrence: US)
  Receive Date: 20120824
  Receipt Date: 20131031
  Transmission Date: 20140711
  Serious: Yes (Disabling)
  Sender: FDA-Public Use
  Company Number: US-009507513-1208USA008361

PATIENT
  Sex: Male
  Weight: 108.84 kg

DRUGS (9)
  1. ZOCOR [Suspect]
     Indication: BLOOD CHOLESTEROL
     Dosage: UNK DF, UNK
     Route: 048
     Dates: end: 1999
  2. DEPAKOTE [Concomitant]
     Indication: MIGRAINE
  3. DILTIAZEM HYDROCHLORIDE [Concomitant]
     Indication: HYPERTENSION
  4. URECHOLINE [Concomitant]
     Indication: BLADDER DISORDER
  5. PROPECIA [Concomitant]
     Dosage: UNK DF, UNK
     Route: 048
  6. LISINOPRIL [Concomitant]
     Indication: HYPERTENSION
  7. CLONIDINE [Concomitant]
  8. WARFARIN [Concomitant]
  9. HYDROCHLOROTHIAZIDE [Concomitant]

REACTIONS (4)
  - Monoparesis [Unknown]
  - Limb discomfort [Unknown]
  - Nerve injury [Unknown]
  - Limb injury [Unknown]
